FAERS Safety Report 8215849-7 (Version None)
Quarter: 2012Q1

REPORT INFORMATION
  Report Type: 
  Country: None (occurrence: None)
  Receive Date: 20120316
  Receipt Date: 20120308
  Transmission Date: 20120608
  Serious: Yes (Hospitalization, Other)
  Sender: FDA-Public Use
  Company Number: JP-VERTEX PHARMACEUTICALS INC.-AE-2012-002736

PATIENT
  Age: 65 Year
  Sex: Female

DRUGS (7)
  1. TELAVIC (TELAPREVIR) [Suspect]
     Dates: start: 20120214, end: 20120221
  2. REBETOL [Concomitant]
     Dates: start: 20120221
  3. TELAVIC (TELAPREVIR) [Suspect]
     Route: 048
     Dates: start: 20120124, end: 20120214
  4. REBETOL [Concomitant]
     Route: 048
     Dates: start: 20120207, end: 20120221
  5. TELAVIC (TELAPREVIR) [Suspect]
     Dates: start: 20120221
  6. REBETOL [Concomitant]
     Route: 048
     Dates: start: 20120124, end: 20120207
  7. PEGINTERFERON [Concomitant]
     Route: 058
     Dates: start: 20120124

REACTIONS (5)
  - MALAISE [None]
  - ANAEMIA [None]
  - NAUSEA [None]
  - RASH [None]
  - HYPOPHAGIA [None]
